FAERS Safety Report 8958801 (Version 1)
Quarter: 2012Q4

REPORT INFORMATION
  Report Type: 
  Country: US (occurrence: US)
  Receive Date: 20121212
  Receipt Date: 20121212
  Transmission Date: 20130627
  Serious: Yes (Hospitalization)
  Sender: FDA-Public Use
  Company Number: US-BAYER-2012-129169

PATIENT
  Age: 30 Year
  Sex: Female
  Weight: 81.63 kg

DRUGS (2)
  1. YASMIN [Suspect]
     Dosage: UNK
     Dates: start: 200308, end: 200806
  2. OCELLA [Suspect]
     Dosage: UNK
     Dates: start: 200806, end: 200908

REACTIONS (1)
  - Cholecystectomy [None]
